FAERS Safety Report 24135344 (Version 2)
Quarter: 2024Q3

REPORT INFORMATION
  Report Type: Spontaneous
  Country: TR (occurrence: TR)
  Receive Date: 20240725
  Receipt Date: 20240926
  Transmission Date: 20241017
  Serious: Yes (Life-Threatening)
  Sender: ROCHE
  Company Number: TR-002147023-NVSC2024TR148360

PATIENT
  Sex: Male

DRUGS (1)
  1. XOLAIR [Suspect]
     Active Substance: OMALIZUMAB
     Indication: Product used for unknown indication
     Dosage: 2 DOSE
     Route: 065

REACTIONS (3)
  - Feeling abnormal [Unknown]
  - Nonspecific reaction [Unknown]
  - Product dose omission issue [Unknown]
